FAERS Safety Report 15206362 (Version 2)
Quarter: 2018Q3

REPORT INFORMATION
  Report Type: Spontaneous
  Country: US (occurrence: US)
  Receive Date: 20180727
  Receipt Date: 20180815
  Transmission Date: 20181010
  Serious: Yes (Death, Other)
  Sender: FDA-Public Use
  Company Number: US-ASTELLAS-2018US033381

PATIENT
  Age: 77 Year
  Sex: Male

DRUGS (1)
  1. XTANDI [Suspect]
     Active Substance: ENZALUTAMIDE
     Indication: PROSTATE CANCER
     Route: 048
     Dates: start: 201702, end: 20180629

REACTIONS (3)
  - Nausea [Not Recovered/Not Resolved]
  - Weight decreased [Not Recovered/Not Resolved]
  - Malignant neoplasm progression [Fatal]

NARRATIVE: CASE EVENT DATE: 20180629
